FAERS Safety Report 14999924 (Version 1)
Quarter: 2018Q2

REPORT INFORMATION
  Report Type: Spontaneous
  Country: US (occurrence: US)
  Receive Date: 20180612
  Receipt Date: 20180612
  Transmission Date: 20180711
  Serious: Yes (Other)
  Sender: FDA-Public Use
  Company Number: US-LUPIN PHARMACEUTICALS INC.-2018-04300

PATIENT
  Age: 59 Year
  Sex: Male

DRUGS (1)
  1. CLONIDINE. [Suspect]
     Active Substance: CLONIDINE
     Indication: PRODUCT USED FOR UNKNOWN INDICATION
     Dosage: 0.6 MG, UNK
     Route: 048

REACTIONS (7)
  - Hypotension [Unknown]
  - Mental disorder [Unknown]
  - Transcription medication error [Unknown]
  - Toxicity to various agents [Unknown]
  - Lethargy [Unknown]
  - Extra dose administered [Unknown]
  - Hypoxia [Unknown]
